FAERS Safety Report 6445992-4 (Version None)
Quarter: 2009Q4

REPORT INFORMATION
  Report Type: 
  Country: None (occurrence: None)
  Receive Date: 20091119
  Receipt Date: 20090514
  Transmission Date: 20100525
  Serious: No
  Sender: FDA-Public Use
  Company Number: A0792108A

PATIENT
  Sex: Male

DRUGS (1)
  1. BUPROPION HCL [Suspect]
     Indication: SMOKING CESSATION THERAPY
     Route: 048

REACTIONS (5)
  - ALCOHOL USE [None]
  - DRUG INEFFECTIVE [None]
  - DRY MOUTH [None]
  - HYPOREFLEXIA [None]
  - MENTAL IMPAIRMENT [None]
